FAERS Safety Report 5454984-3 (Version None)
Quarter: 2007Q3

REPORT INFORMATION
  Report Type: 
  Country: None (occurrence: None)
  Receive Date: 20070917
  Receipt Date: 20070903
  Transmission Date: 20080115
  Serious: Yes (Hospitalization)
  Sender: FDA-Public Use
  Company Number: JP-PFIZER INC-2007063546

PATIENT
  Sex: Male

DRUGS (9)
  1. MIGLITOL TABLET [Suspect]
     Indication: DIABETES MELLITUS
     Dosage: DAILY DOSE:150MG
     Route: 048
     Dates: start: 20070410, end: 20070717
  2. ASPIRIN [Suspect]
     Indication: CEREBRAL INFARCTION
     Dosage: DAILY DOSE:100MG
     Route: 048
     Dates: start: 20070323, end: 20070717
  3. ATELEC [Suspect]
     Indication: HYPERTENSION
     Dosage: DAILY DOSE:10MG
     Route: 048
     Dates: start: 20070323, end: 20070717
  4. CANDESARTAN CILEXETIL [Suspect]
     Indication: HYPERTENSION
     Dosage: DAILY DOSE:8MG
     Route: 048
     Dates: start: 20070329, end: 20070717
  5. FAMOTIDINE [Suspect]
     Indication: GASTRITIS
     Dosage: DAILY DOSE:40MG
     Route: 048
     Dates: start: 20070404, end: 20070717
  6. AMARYL [Suspect]
     Indication: DIABETES MELLITUS
     Dosage: DAILY DOSE:1MG
     Route: 048
     Dates: start: 20070511, end: 20070717
  7. ACTOS [Suspect]
     Indication: DIABETES MELLITUS
     Route: 048
     Dates: start: 20070511, end: 20070717
  8. DEPAS [Suspect]
     Indication: ANXIETY DISORDER
     Dosage: DAILY DOSE:1MG
     Route: 048
     Dates: start: 20070606, end: 20070717
  9. PAXIL [Suspect]
     Indication: DEPRESSION
     Dosage: DAILY DOSE:40MG
     Route: 048
     Dates: start: 20070606, end: 20070717

REACTIONS (1)
  - LIVER DISORDER [None]
